FAERS Safety Report 20127653 (Version 1)
Quarter: 2021Q4

REPORT INFORMATION
  Report Type: Spontaneous
  Country: US (occurrence: US)
  Receive Date: 20211129
  Receipt Date: 20211129
  Transmission Date: 20220303
  Serious: No
  Sender: FDA-Public Use
  Company Number: US-SANOFI-00866365

PATIENT

DRUGS (3)
  1. FABRAZYME [Suspect]
     Active Substance: AGALSIDASE BETA
  2. LUMIZYME [Suspect]
     Active Substance: ALGLUCOSIDASE ALFA
  3. CEREZYME [Suspect]
     Active Substance: IMIGLUCERASE

REACTIONS (1)
  - Product storage error [Unknown]
